FAERS Safety Report 19402723 (Version 1)
Quarter: 2021Q2

REPORT INFORMATION
  Report Type: Spontaneous
  Country: US (occurrence: US)
  Receive Date: 20210610
  Receipt Date: 20210610
  Transmission Date: 20210717
  Serious: Yes (Hospitalization)
  Sender: FDA-Public Use
  Company Number: US-ASTRAZENECA-2021A516936

PATIENT
  Sex: Female
  Weight: 49 kg

DRUGS (3)
  1. LYNPARZA [Suspect]
     Active Substance: OLAPARIB
     Indication: HEPATIC NEOPLASM
     Route: 048
  2. LYNPARZA [Suspect]
     Active Substance: OLAPARIB
     Indication: HEPATIC NEOPLASM
     Route: 048
  3. LYNPARZA [Suspect]
     Active Substance: OLAPARIB
     Indication: HEPATIC NEOPLASM
     Dosage: UNKNOWN DOSE
     Route: 048
     Dates: end: 202103

REACTIONS (1)
  - Fluid retention [Recovered/Resolved]
